FAERS Safety Report 9180167 (Version 1)
Quarter: 2013Q1

REPORT INFORMATION
  Report Type: Spontaneous
  Country: FR (occurrence: FR)
  Receive Date: 20130322
  Receipt Date: 20130322
  Transmission Date: 20140127
  Serious: Yes (Other)
  Sender: FDA-Public Use
  Company Number: FR-ABBOTT-13X-056-1066652-00

PATIENT
  Age: 30 Year
  Sex: Male

DRUGS (1)
  1. DEPAKINE [Suspect]
     Indication: CONVULSION
     Route: 048

REACTIONS (2)
  - Wrong technique in drug usage process [Unknown]
  - Epilepsy [Unknown]
